FAERS Safety Report 16938463 (Version 1)
Quarter: 2019Q4

REPORT INFORMATION
  Report Type: Spontaneous
  Country: DE (occurrence: DE)
  Receive Date: 20191019
  Receipt Date: 20191019
  Transmission Date: 20200122
  Serious: Yes (Other)
  Sender: FDA-Public Use
  Company Number: NVSC2019DE008244

PATIENT
  Age: 43 Year
  Sex: Female

DRUGS (2)
  1. GILENYA [Suspect]
     Active Substance: FINGOLIMOD HYDROCHLORIDE
     Dosage: 0.5 MG, QOD (EVERY 2ND DAY)
     Route: 048
     Dates: start: 2019
  2. GILENYA [Suspect]
     Active Substance: FINGOLIMOD HYDROCHLORIDE
     Indication: RELAPSING-REMITTING MULTIPLE SCLEROSIS
     Dosage: 0.5 MG, QD
     Route: 048
     Dates: start: 2015, end: 2019

REACTIONS (2)
  - Inappropriate schedule of product administration [Unknown]
  - Lymphopenia [Recovering/Resolving]

NARRATIVE: CASE EVENT DATE: 2019
